FAERS Safety Report 10305213 (Version 1)
Quarter: 2014Q3

REPORT INFORMATION
  Report Type: Spontaneous
  Country: GB (occurrence: None)
  Receive Date: 20140710
  Receipt Date: 20140710
  Transmission Date: 20150326
  Serious: Yes (Disabling, Other)
  Sender: FDA-Public Use
  Company Number: AUR-APL-2014-07242

PATIENT
  Age: 55 Year
  Sex: Male
  Weight: 72 kg

DRUGS (6)
  1. COCODAMOL [Suspect]
     Active Substance: ACETAMINOPHEN\CODEINE PHOSPHATE
     Indication: ARTHRALGIA
     Route: 048
     Dates: start: 20031218
  2. IRON (IRON) [Concomitant]
     Active Substance: IRON
  3. LANSOPRAZOLE (LANSOPRAZOLE) [Concomitant]
     Active Substance: LANSOPRAZOLE
  4. TRAMADOL [Suspect]
     Active Substance: TRAMADOL
     Indication: ARTHRALGIA
     Route: 048
     Dates: start: 20031218
  5. VENLAFAXINE HYDROCLORIDE (VENLAFAXINE HYDROCHLORIDE) [Concomitant]
  6. DHC-CONTINUS [Suspect]
     Active Substance: DIHYDROCODEINE BITARTRATE
     Indication: ARTHRALGIA
     Route: 048
     Dates: start: 20031218

REACTIONS (5)
  - Confusional state [None]
  - Amnesia [None]
  - Memory impairment [None]
  - Dizziness [None]
  - Disturbance in attention [None]

NARRATIVE: CASE EVENT DATE: 20050118
